FAERS Safety Report 11141286 (Version 1)
Quarter: 2015Q2

REPORT INFORMATION
  Report Type: Report from Study
  Country: CA (occurrence: CA)
  Receive Date: 20150527
  Receipt Date: 20150527
  Transmission Date: 20150821
  Serious: Yes (Other)
  Sender: FDA-Public Use
  Company Number: CA-JNJFOC-20150513988

PATIENT
  Sex: Female
  Weight: 95.6 kg

DRUGS (3)
  1. REMICADE [Suspect]
     Active Substance: INFLIXIMAB
     Indication: CROHN^S DISEASE
     Route: 042
     Dates: start: 20101130
  2. METHOTREXATE [Concomitant]
     Active Substance: METHOTREXATE
     Route: 048
  3. REMICADE [Suspect]
     Active Substance: INFLIXIMAB
     Indication: CROHN^S DISEASE
     Dosage: INFUSION 28
     Route: 042
     Dates: start: 20150324

REACTIONS (2)
  - Herpes ophthalmic [Not Recovered/Not Resolved]
  - Hypothyroidism [Not Recovered/Not Resolved]

NARRATIVE: CASE EVENT DATE: 2015
